FAERS Safety Report 7292543-0 (Version None)
Quarter: 2011Q1

REPORT INFORMATION
  Report Type: 
  Country: None (occurrence: None)
  Receive Date: 20110215
  Receipt Date: 20110207
  Transmission Date: 20110831
  Serious: Yes (Hospitalization)
  Sender: FDA-Public Use
  Company Number: JP-BAYER-2011-012195

PATIENT
  Sex: Female

DRUGS (2)
  1. ASPIRIN [Suspect]
     Dosage: UNK
     Route: 048
     Dates: start: 20100501
  2. ANTIHYPERTENSIVES [Concomitant]
     Route: 048

REACTIONS (3)
  - HAEMOLYTIC ANAEMIA [None]
  - CHOLESTASIS [None]
  - PLATELET COUNT DECREASED [None]
